FAERS Safety Report 23845551 (Version 1)
Quarter: 2024Q2

REPORT INFORMATION
  Report Type: Spontaneous
  Country: US (occurrence: US)
  Receive Date: 20240511
  Receipt Date: 20240511
  Transmission Date: 20240716
  Serious: No
  Sender: FDA-Public Use
  Company Number: US-SA-SAC20240508001098

PATIENT
  Sex: Male
  Weight: 34.9 kg

DRUGS (8)
  1. DUPIXENT [Suspect]
     Active Substance: DUPILUMAB
     Indication: Eosinophilic oesophagitis
     Dosage: 300 MG, QOW
     Route: 058
     Dates: start: 202403
  2. GABAPENTIN [Concomitant]
     Active Substance: GABAPENTIN
  3. MOTRIN IB [Concomitant]
     Active Substance: IBUPROFEN
  4. VALIUM [Concomitant]
     Active Substance: DIAZEPAM
  5. DIAZEPAM [Concomitant]
     Active Substance: DIAZEPAM
  6. TYLENOL [Concomitant]
     Active Substance: ACETAMINOPHEN
  7. IBU [Concomitant]
     Active Substance: IBUPROFEN
  8. VITAMINS [Concomitant]
     Active Substance: VITAMINS

REACTIONS (1)
  - Scoliosis [Unknown]

NARRATIVE: CASE EVENT DATE: 20240101
